FAERS Safety Report 11168944 (Version 2)
Quarter: 2015Q2

REPORT INFORMATION
  Report Type: Spontaneous
  Country: US (occurrence: US)
  Receive Date: 20150605
  Receipt Date: 20150618
  Transmission Date: 20150821
  Serious: Yes (Other)
  Sender: FDA-Public Use
  Company Number: US-CIPLA LTD.-2015US04539

PATIENT

DRUGS (7)
  1. IRINOTECAN [Suspect]
     Active Substance: IRINOTECAN
     Indication: PANCREATIC CARCINOMA METASTATIC
     Dosage: 180 MG/M2, CONTINUOUS INFUSION WITHOUT A BOLUS
  2. LEUCOVORIN [Suspect]
     Active Substance: LEUCOVORIN
     Indication: PANCREATIC CARCINOMA METASTATIC
     Dosage: 400 MG/M2, CONTINUOUS INFUSION WITHOUT A BOLUS
  3. FLUOROURACIL. [Suspect]
     Active Substance: FLUOROURACIL
     Indication: PANCREATIC CARCINOMA METASTATIC
     Dosage: 2400 MG/M2, BY CONTINUOUS INFUSION OVER 48 H CONTINUOUS INFUSION WITHOUT A BOLUS
  4. DEXAMETHASONE. [Suspect]
     Active Substance: DEXAMETHASONE
     Indication: PROPHYLAXIS
     Dosage: 10 MG, UNK
     Route: 042
  5. ONDANSETRON [Suspect]
     Active Substance: ONDANSETRON
     Indication: PROPHYLAXIS
     Dosage: 12 MG, UNK
     Route: 042
  6. OXALIPLATIN. [Suspect]
     Active Substance: OXALIPLATIN
     Indication: PANCREATIC CARCINOMA METASTATIC
     Dosage: 85 MG/M2, CONTINUOUS INFUSION OVER 2 H
  7. ATROPINE [Suspect]
     Active Substance: ATROPINE
     Indication: PROPHYLAXIS
     Dosage: 1 MG, UNK
     Route: 042

REACTIONS (3)
  - Aphasia [Recovered/Resolved]
  - Quadriplegia [Recovered/Resolved]
  - Asthenia [Recovered/Resolved]
